FAERS Safety Report 26090753 (Version 2)
Quarter: 2025Q4

REPORT INFORMATION
  Report Type: Spontaneous
  Country: JP (occurrence: JP)
  Receive Date: 20251126
  Receipt Date: 20251218
  Transmission Date: 20260118
  Serious: Yes (Hospitalization)
  Sender: ROCHE
  Company Number: JP-CHUGAI-2025034415

PATIENT
  Age: 65 Year
  Sex: Female

DRUGS (1)
  1. ENSPRYNG [Suspect]
     Active Substance: SATRALIZUMAB-MWGE
     Indication: Neuromyelitis optica spectrum disorder
     Route: 058

REACTIONS (4)
  - Contusion [Recovered/Resolved]
  - Dermatitis [Unknown]
  - Oedema [Unknown]
  - Haematoma [Unknown]

NARRATIVE: CASE EVENT DATE: 20250101
